FAERS Safety Report 13230420 (Version 4)
Quarter: 2017Q2

REPORT INFORMATION
  Report Type: Spontaneous
  Country: US (occurrence: US)
  Receive Date: 20170214
  Receipt Date: 20170413
  Transmission Date: 20170830
  Serious: Yes (Hospitalization, Other)
  Sender: FDA-Public Use
  Company Number: US-PFIZER INC-2017058642

PATIENT
  Age: 42 Year
  Sex: Male
  Weight: 113.4 kg

DRUGS (10)
  1. REVATIO [Suspect]
     Active Substance: SILDENAFIL CITRATE
     Indication: SARCOIDOSIS
     Dosage: 20 MG, 3X/DAY
     Route: 048
     Dates: start: 201504
  2. PREDNISONE. [Concomitant]
     Active Substance: PREDNISONE
     Dosage: 10 MG, UNK,(TAKING OFF AND ON)
  3. REVATIO [Suspect]
     Active Substance: SILDENAFIL CITRATE
     Indication: CARDIAC FAILURE CONGESTIVE
  4. LISINOPRIL. [Concomitant]
     Active Substance: LISINOPRIL
     Dosage: UNK
  5. REVATIO [Suspect]
     Active Substance: SILDENAFIL CITRATE
     Indication: PULMONARY HYPERTENSION
     Dosage: 20 MG, 3X/DAY
     Route: 048
     Dates: start: 201701
  6. ATORVASTATIN [Concomitant]
     Active Substance: ATORVASTATIN
     Dosage: 40 MG, 1X/DAY(EVERY NIGHT BEFORE BED)
     Route: 048
     Dates: start: 2015
  7. LISINOPRIL. [Concomitant]
     Active Substance: LISINOPRIL
     Indication: HYPERTENSION
     Dosage: 40 MG, 1X/DAY
     Dates: start: 2015
  8. OXYGEN. [Concomitant]
     Active Substance: OXYGEN
     Dosage: UNK
  9. METOPROLOL TARTRATE. [Concomitant]
     Active Substance: METOPROLOL TARTRATE
     Indication: CARDIAC DISORDER
     Dosage: 50 MG, 2X/DAY
     Route: 048
     Dates: start: 2015
  10. MAGNESIUM OXIDE. [Concomitant]
     Active Substance: MAGNESIUM OXIDE
     Dosage: 400 MG, 2X/DAY
     Route: 048
     Dates: start: 2015

REACTIONS (11)
  - Carbon monoxide poisoning [Unknown]
  - Somnolence [Not Recovered/Not Resolved]
  - Cough [Recovered/Resolved]
  - Fluid retention [Recovering/Resolving]
  - Pneumonia [Recovered/Resolved]
  - Drug dose omission [Not Recovered/Not Resolved]
  - Pleural effusion [Recovering/Resolving]
  - Renal impairment [Unknown]
  - Cardiac failure congestive [Not Recovered/Not Resolved]
  - Pancreatitis [Recovered/Resolved]
  - Peripheral swelling [Recovering/Resolving]

NARRATIVE: CASE EVENT DATE: 201612
